FAERS Safety Report 5264241-6 (Version None)
Quarter: 2007Q1

REPORT INFORMATION
  Report Type: 
  Country: None (occurrence: None)
  Receive Date: 20070313
  Receipt Date: 20070305
  Transmission Date: 20070707
  Serious: Yes (Other)
  Sender: FDA-Public Use
  Company Number: ES-SHR-ES-2007-008230

PATIENT

DRUGS (1)
  1. ULTRAVIST / CLAROGRAF (500 ML) [Suspect]
     Dosage: UNK ML, 1 DOSE

REACTIONS (1)
  - LOCALISED OEDEMA [None]
